FAERS Safety Report 4497801-0 (Version None)
Quarter: 2004Q4

REPORT INFORMATION
  Report Type: 
  Country: None (occurrence: None)
  Receive Date: 20041104
  Receipt Date: 20041025
  Transmission Date: 20050328
  Serious: Yes (Hospitalization)
  Sender: FDA-Public Use
  Company Number: 2004EU001935

PATIENT
  Age: 12 Year
  Sex: Female

DRUGS (3)
  1. FK506           (TACROLIMUS) [Suspect]
     Indication: RENAL TRANSPLANT
     Dosage: BID, ORAL
     Route: 048
  2. PREDNISONE [Concomitant]
  3. CELLCEPT [Concomitant]

REACTIONS (4)
  - DILATATION INTRAHEPATIC DUCT CONGENITAL [None]
  - GASTROENTERITIS SALMONELLA [None]
  - OCCULT BLOOD [None]
  - URINARY TRACT INFECTION [None]
